FAERS Safety Report 17428931 (Version 1)
Quarter: 2020Q1

REPORT INFORMATION
  Report Type: Spontaneous
  Country: US (occurrence: US)
  Receive Date: 20200218
  Receipt Date: 20200218
  Transmission Date: 20200409
  Serious: Yes (Other)
  Sender: FDA-Public Use
  Company Number: US-LUNDBECK-DKLU3012250

PATIENT
  Age: 9 Year
  Sex: Female
  Weight: 26 kg

DRUGS (1)
  1. SABRIL [Suspect]
     Active Substance: VIGABATRIN
     Indication: INFANTILE SPASMS
     Route: 048

REACTIONS (2)
  - Drug withdrawal convulsions [Unknown]
  - Product dose omission [Unknown]

NARRATIVE: CASE EVENT DATE: 20200212
